FAERS Safety Report 9334008 (Version 2)
Quarter: 2013Q4

REPORT INFORMATION
  Report Type: Spontaneous
  Country: US (occurrence: US)
  Receive Date: 20130606
  Receipt Date: 20131008
  Transmission Date: 20140711
  Serious: No
  Sender: FDA-Public Use
  Company Number: US-AMGEN-USASP2013011313

PATIENT
  Sex: Female

DRUGS (3)
  1. PROLIA [Suspect]
     Indication: OSTEOPOROSIS POSTMENOPAUSAL
     Dosage: UNK, Q6MO
     Route: 065
  2. CALCIUM [Concomitant]
  3. MAGNESIUM [Concomitant]

REACTIONS (11)
  - Calcium deficiency [Unknown]
  - Tooth disorder [Unknown]
  - Tooth fracture [Unknown]
  - Onychomadesis [Unknown]
  - Alopecia [Unknown]
  - Spinal pain [Not Recovered/Not Resolved]
  - Fracture [Unknown]
  - Arthralgia [Not Recovered/Not Resolved]
  - Insomnia [Not Recovered/Not Resolved]
  - Bone pain [Not Recovered/Not Resolved]
  - Pain in extremity [Recovered/Resolved]
